FAERS Safety Report 17845564 (Version 2)
Quarter: 2022Q3

REPORT INFORMATION
  Report Type: Spontaneous
  Country: US (occurrence: US)
  Receive Date: 20200601
  Receipt Date: 20220706
  Transmission Date: 20221026
  Serious: No
  Sender: FDA-Public Use
  Company Number: US-PFIZER INC-2020209869

PATIENT
  Age: 33 Year
  Sex: Male
  Weight: 74.84 kg

DRUGS (1)
  1. ETHOSUXIMIDE [Suspect]
     Active Substance: ETHOSUXIMIDE
     Indication: Seizure
     Dosage: 12.5 ML, 2X/DAY

REACTIONS (1)
  - Drug ineffective [Unknown]
